FAERS Safety Report 17054732 (Version 1)
Quarter: 2019Q4

REPORT INFORMATION
  Report Type: Spontaneous
  Country: US (occurrence: US)
  Receive Date: 20191022
  Receipt Date: 20191022
  Transmission Date: 20200122
  Serious: No
  Sender: FDA-Public Use
  Company Number: None

PATIENT
  Age: 75 Year
  Sex: Female

DRUGS (22)
  1. HYDROCHLOROT [Concomitant]
     Active Substance: HYDROCHLOROTHIAZIDE
  2. CETIRIZINE [Concomitant]
     Active Substance: CETIRIZINE HYDROCHLORIDE
  3. HUMALOG KWIK [Concomitant]
  4. MOMETASONE [Concomitant]
     Active Substance: MOMETASONE
  5. PREDNISONE. [Concomitant]
     Active Substance: PREDNISONE
  6. GABAPENTIN. [Concomitant]
     Active Substance: GABAPENTIN
  7. HYDRALAZINE [Concomitant]
     Active Substance: HYDRALAZINE HYDROCHLORIDE
  8. NOVOLOG [Concomitant]
     Active Substance: INSULIN ASPART
  9. OMEPRAZOLE. [Concomitant]
     Active Substance: OMEPRAZOLE
  10. ATORVASTATIN [Concomitant]
     Active Substance: ATORVASTATIN
  11. METOPROL TAR [Concomitant]
  12. PRIMIDONE. [Concomitant]
     Active Substance: PRIMIDONE
  13. TOPIRAMATE. [Concomitant]
     Active Substance: TOPIRAMATE
  14. COMBIGAN [Concomitant]
     Active Substance: BRIMONIDINE TARTRATE\TIMOLOL MALEATE
  15. LUMIGAN [Concomitant]
     Active Substance: BIMATOPROST
  16. RESTASIS [Concomitant]
     Active Substance: CYCLOSPORINE
  17. OCALIVA [Suspect]
     Active Substance: OBETICHOLIC ACID
     Indication: PRIMARY BILIARY CHOLANGITIS
     Route: 048
     Dates: start: 20190607
  18. ALPRAZOLAM. [Concomitant]
     Active Substance: ALPRAZOLAM
  19. PD PEN NEEDL MIS [Concomitant]
  20. AMLOD/OLMESA [Concomitant]
  21. LEVEMIR [Concomitant]
     Active Substance: INSULIN DETEMIR
  22. URSODIOL. [Concomitant]
     Active Substance: URSODIOL

REACTIONS (2)
  - Nausea [None]
  - Pruritus [None]

NARRATIVE: CASE EVENT DATE: 2019
